FAERS Safety Report 6907980-0 (Version None)
Quarter: 2010Q3

REPORT INFORMATION
  Report Type: 
  Country: None (occurrence: None)
  Receive Date: 20100712
  Receipt Date: 20100318
  Transmission Date: 20110219
  Serious: No
  Sender: FDA-Public Use
  Company Number: US-000085

PATIENT
  Sex: Male
  Weight: 54.3 kg

DRUGS (1)
  1. KUVAN [Suspect]
     Indication: PHENYLKETONURIA
     Dosage: 1000 MG ORAL
     Route: 048
     Dates: start: 20071019

REACTIONS (2)
  - PROTEIN URINE PRESENT [None]
  - URINARY CASTS [None]
